FAERS Safety Report 11596825 (Version 1)
Quarter: 2015Q4

REPORT INFORMATION
  Report Type: Spontaneous
  Country: US (occurrence: None)
  Receive Date: 20151005
  Receipt Date: 20151005
  Transmission Date: 20160304
  Serious: No
  Sender: FDA-Public Use
  Company Number: None

PATIENT
  Age: 56 Year
  Sex: Male
  Weight: 64.41 kg

DRUGS (1)
  1. VENLAFAXINE ER [Suspect]
     Active Substance: VENLAFAXINE HYDROCHLORIDE
     Indication: DEPRESSION
     Dosage: ONR PILL
     Route: 048
     Dates: start: 20150304, end: 20151004

REACTIONS (4)
  - Male orgasmic disorder [None]
  - Impulsive behaviour [None]
  - Pain [None]
  - Sexual dysfunction [None]

NARRATIVE: CASE EVENT DATE: 20150911
